FAERS Safety Report 8194429-6 (Version None)
Quarter: 2012Q1

REPORT INFORMATION
  Report Type: 
  Country: None (occurrence: None)
  Receive Date: 20120308
  Receipt Date: 20120228
  Transmission Date: 20120608
  Serious: Yes (Congenital Anomaly)
  Sender: FDA-Public Use
  Company Number: NO-ASTRAZENECA-2012SE13578

PATIENT

DRUGS (2)
  1. FENTANYL CITRATE [Suspect]
     Indication: FOETAL EXPOSURE DURING PREGNANCY
     Dosage: DOSAGE FORM: SOLUTION, 2UG/ML
     Route: 064
  2. ROPIVACAINE HYDROCHLORIDE [Suspect]
     Indication: FOETAL EXPOSURE DURING PREGNANCY
     Dosage: DOSAGE FORM: SOLUTION, 1MG/ML
     Route: 064

REACTIONS (1)
  - HIP DYSPLASIA [None]
